FAERS Safety Report 14292757 (Version 1)
Quarter: 2017Q4

REPORT INFORMATION
  Report Type: Spontaneous
  Country: US (occurrence: US)
  Receive Date: 20171215
  Receipt Date: 20171215
  Transmission Date: 20180321
  Serious: No
  Sender: FDA-Public Use
  Company Number: US-BAUSCH-BL-2017-014554

PATIENT
  Age: 54 Year
  Sex: Male

DRUGS (7)
  1. LEVOTHYROXINE. [Concomitant]
     Active Substance: LEVOTHYROXINE
     Indication: THYROID DISORDER
  2. TIMOPTIC-XE [Suspect]
     Active Substance: TIMOLOL MALEATE
     Indication: INTRAOCULAR PRESSURE INCREASED
     Dosage: USED TWO DOSES ONLY.
     Route: 047
     Dates: start: 201704, end: 2017
  3. TIMOPTIC [Suspect]
     Active Substance: TIMOLOL MALEATE
     Route: 047
  4. LATANOPROST/TIMOLOL [Suspect]
     Active Substance: LATANOPROST\TIMOLOL
     Indication: PRODUCT USED FOR UNKNOWN INDICATION
     Route: 047
     Dates: start: 2013, end: 2014
  5. ERYTHROMYCIN. [Concomitant]
     Active Substance: ERYTHROMYCIN
     Indication: PRODUCT USED FOR UNKNOWN INDICATION
     Route: 047
  6. TIMOPTIC [Suspect]
     Active Substance: TIMOLOL MALEATE
     Indication: INTRAOCULAR PRESSURE INCREASED
     Dosage: 1 DROP INTO BOTH EYES
     Route: 047
     Dates: start: 2014, end: 2015
  7. BRIMONIDINE [Concomitant]
     Active Substance: BRIMONIDINE TARTRATE
     Indication: PRODUCT USED FOR UNKNOWN INDICATION
     Route: 047

REACTIONS (4)
  - Instillation site pruritus [Recovered/Resolved]
  - Instillation site pain [Recovered/Resolved]
  - Instillation site swelling [Recovered/Resolved]
  - Instillation site erythema [Recovered/Resolved]

NARRATIVE: CASE EVENT DATE: 2014
